FAERS Safety Report 16301949 (Version 10)
Quarter: 2021Q3

REPORT INFORMATION
  Report Type: Report from Study
  Country: JP (occurrence: JP)
  Receive Date: 20190512
  Receipt Date: 20210818
  Transmission Date: 20211014
  Serious: Yes (Hospitalization)
  Sender: FDA-Public Use
  Company Number: PHJP2019JP004959

PATIENT
  Age: 38 Year
  Sex: Female
  Weight: 45.8 kg

DRUGS (22)
  1. DEXCHLORPHENIRAMINE MALEATE. [Concomitant]
     Active Substance: DEXCHLORPHENIRAMINE MALEATE
     Dosage: UNK
     Route: 065
     Dates: start: 20190411, end: 20190411
  2. METOCLOPRAMIDE HYDROCHLORIDE. [Concomitant]
     Active Substance: METOCLOPRAMIDE HYDROCHLORIDE
     Indication: NAUSEA
     Dosage: UNK
     Route: 065
     Dates: start: 20190429, end: 20190504
  3. FESOTERODINE FUMARATE. [Concomitant]
     Active Substance: FESOTERODINE FUMARATE
     Indication: DYSURIA
     Dosage: 4 MG QD
     Route: 065
     Dates: start: 20180918
  4. DEXAMETHASONE SODIUM PHOSPHATE. [Concomitant]
     Active Substance: DEXAMETHASONE SODIUM PHOSPHATE
     Indication: THERAPEUTIC PROCEDURE
     Dosage: 13.2 MG, ONCE/SINGLE
     Route: 042
     Dates: start: 20181018, end: 20181018
  5. VONOPRAZAN FUMARATE [Concomitant]
     Active Substance: VONOPRAZAN FUMARATE
     Indication: PROPHYLAXIS AGAINST GASTROINTESTINAL ULCER
     Dosage: UNK
     Route: 065
     Dates: start: 20190430, end: 20190917
  6. ACETAMINOPHEN. [Concomitant]
     Active Substance: ACETAMINOPHEN
     Indication: THERAPEUTIC PROCEDURE
     Dosage: 400 MG ONCE/SINGLE
     Route: 048
     Dates: start: 20181018, end: 20181018
  7. ACETAMINOPHEN. [Concomitant]
     Active Substance: ACETAMINOPHEN
     Dosage: 400 MG ONCE/SINGLE
     Route: 048
     Dates: start: 20181101, end: 20181101
  8. ACETAMINOPHEN. [Concomitant]
     Active Substance: ACETAMINOPHEN
     Dosage: 400 MG ONCE/SINGLE
     Route: 048
     Dates: start: 20190417, end: 20190417
  9. DEXCHLORPHENIRAMINE MALEATE. [Concomitant]
     Active Substance: DEXCHLORPHENIRAMINE MALEATE
     Indication: THERAPEUTIC PROCEDURE
     Dosage: UNK
     Route: 065
     Dates: start: 20190417, end: 20190417
  10. ACETAMINOPHEN. [Concomitant]
     Active Substance: ACETAMINOPHEN
     Dosage: 400 MG ONCE/SINGLE
     Route: 048
     Dates: start: 20181025, end: 20181025
  11. ACETAMINOPHEN. [Concomitant]
     Active Substance: ACETAMINOPHEN
     Dosage: 400 MG ONCE/SINGLE
     Route: 048
     Dates: start: 20181115, end: 20181115
  12. ACETAMINOPHEN. [Concomitant]
     Active Substance: ACETAMINOPHEN
     Dosage: 400 MG ONCE/SINGLE
     Route: 048
     Dates: start: 20190411, end: 20190411
  13. GLATIRAMER ACETATE. [Concomitant]
     Active Substance: GLATIRAMER ACETATE
     Indication: MULTIPLE SCLEROSIS
     Dosage: UNK
     Route: 065
  14. AMANTADINE HYDROCHLORIDE. [Concomitant]
     Active Substance: AMANTADINE HYDROCHLORIDE
     Indication: PROPHYLAXIS
     Dosage: UNK
     Route: 065
     Dates: start: 20180402
  15. DEXAMETHASONE SODIUM PHOSPHATE. [Concomitant]
     Active Substance: DEXAMETHASONE SODIUM PHOSPHATE
     Dosage: 13.2 MG, ONCE/SINGLE
     Route: 042
     Dates: start: 20181126, end: 20181128
  16. DEXAMETHASONE SODIUM PHOSPHATE. [Concomitant]
     Active Substance: DEXAMETHASONE SODIUM PHOSPHATE
     Dosage: UNK
     Route: 042
     Dates: start: 20190430, end: 20190504
  17. METOCLOPRAMIDE HYDROCHLORIDE. [Concomitant]
     Active Substance: METOCLOPRAMIDE HYDROCHLORIDE
     Indication: NAUSEA
     Dosage: UNK
     Route: 065
     Dates: start: 20190411, end: 20190512
  18. OFATUMUMAB [Suspect]
     Active Substance: OFATUMUMAB
     Indication: RELAPSING MULTIPLE SCLEROSIS
     Dosage: 20 DF, Q4W
     Route: 058
     Dates: start: 20190411, end: 20190417
  19. DEXAMETHASONE SODIUM PHOSPHATE. [Concomitant]
     Active Substance: DEXAMETHASONE SODIUM PHOSPHATE
     Dosage: 13.2 MG, ONCE/SINGLE
     Route: 042
     Dates: start: 20190411, end: 20190415
  20. BROTIZOLAM [Concomitant]
     Active Substance: BROTIZOLAM
     Indication: INSOMNIA
     Dosage: 0.25 MG QD
     Route: 048
     Dates: start: 20190110
  21. ARZERRA [Suspect]
     Active Substance: OFATUMUMAB
     Indication: RELAPSING MULTIPLE SCLEROSIS
     Dosage: UNK
     Route: 058
     Dates: start: 20181018
  22. SODIUM HYALURONATE [Concomitant]
     Active Substance: HYALURONATE SODIUM
     Indication: DRY EYE
     Dosage: 1 MEDICAL DROP 4 TIMES AS DAY
     Route: 047
     Dates: start: 20181226

REACTIONS (1)
  - Cardiac failure acute [Recovered/Resolved]

NARRATIVE: CASE EVENT DATE: 20190429
